FAERS Safety Report 5871253-8 (Version None)
Quarter: 2008Q3

REPORT INFORMATION
  Report Type: 
  Country: None (occurrence: None)
  Receive Date: 20080905
  Receipt Date: 20080825
  Transmission Date: 20090109
  Serious: Yes (Hospitalization)
  Sender: FDA-Public Use
  Company Number: FR-JNJFOC-20080805213

PATIENT
  Sex: Male

DRUGS (3)
  1. PREZISTA [Suspect]
     Indication: HIV INFECTION
     Route: 048
  2. NORVIR [Concomitant]
     Indication: HIV INFECTION
     Route: 048
  3. EPIVIR [Concomitant]
     Indication: HIV INFECTION
     Route: 048

REACTIONS (3)
  - MYOCARDIAL INFARCTION [None]
  - PERICARDITIS [None]
  - PULMONARY OEDEMA [None]
